FAERS Safety Report 11402419 (Version 1)
Quarter: 2015Q3

REPORT INFORMATION
  Report Type: Spontaneous
  Country: US (occurrence: US)
  Receive Date: 20150821
  Receipt Date: 20150821
  Transmission Date: 20151125
  Serious: No
  Sender: FDA-Public Use
  Company Number: US-ROCHE-1023557

PATIENT
  Sex: Male

DRUGS (3)
  1. PEGASYS [Suspect]
     Active Substance: PEGINTERFERON ALFA-2A
     Indication: CHRONIC HEPATITIS C
     Route: 058
     Dates: start: 20111213
  2. TELAPREVIR [Suspect]
     Active Substance: TELAPREVIR
     Indication: CHRONIC HEPATITIS C
     Route: 065
     Dates: start: 20111213
  3. RIBAVIRIN. [Suspect]
     Active Substance: RIBAVIRIN
     Indication: CHRONIC HEPATITIS C
     Route: 048
     Dates: start: 20111213

REACTIONS (11)
  - Injection site pruritus [Unknown]
  - Depression [Unknown]
  - Injection site erythema [Unknown]
  - Fatigue [Unknown]
  - Hepatic lesion [Unknown]
  - Anaemia [Unknown]
  - Headache [Unknown]
  - Anxiety [Unknown]
  - Influenza like illness [Unknown]
  - Full blood count decreased [Unknown]
  - Gastric disorder [Unknown]
